FAERS Safety Report 25263880 (Version 1)
Quarter: 2025Q2

REPORT INFORMATION
  Report Type: Spontaneous
  Country: CN (occurrence: CN)
  Receive Date: 20250502
  Receipt Date: 20250502
  Transmission Date: 20250716
  Serious: Yes (Life-Threatening, Other)
  Sender: BRACCO
  Company Number: CN-BRACCO-2025CN02743

PATIENT
  Age: 28 Year
  Sex: Male

DRUGS (3)
  1. SULPHUR HEXAFLUORIDE [Suspect]
     Active Substance: SULFUR HEXAFLUORIDE
     Indication: Imaging procedure
     Route: 041
     Dates: start: 20250423, end: 20250423
  2. SULPHUR HEXAFLUORIDE [Suspect]
     Active Substance: SULFUR HEXAFLUORIDE
     Indication: Imaging procedure
     Route: 041
     Dates: start: 20250423, end: 20250423
  3. SULPHUR HEXAFLUORIDE [Suspect]
     Active Substance: SULFUR HEXAFLUORIDE
     Indication: Imaging procedure
     Route: 041
     Dates: start: 20250423, end: 20250423

REACTIONS (2)
  - Anaphylactoid reaction [Recovering/Resolving]
  - Haemoptysis [Recovering/Resolving]

NARRATIVE: CASE EVENT DATE: 20250423
